FAERS Safety Report 6840887-6 (Version None)
Quarter: 2010Q3

REPORT INFORMATION
  Report Type: 
  Country: None (occurrence: None)
  Receive Date: 20100714
  Receipt Date: 20070620
  Transmission Date: 20110219
  Serious: No
  Sender: FDA-Public Use
  Company Number: US-PFIZER INC-2007052433

PATIENT
  Sex: Female
  Weight: 51.818 kg

DRUGS (12)
  1. CHANTIX [Suspect]
     Indication: SMOKING CESSATION THERAPY
     Dates: start: 20070611
  2. PROPAFENONE HCL [Concomitant]
  3. COUMADIN [Concomitant]
  4. MELOXICAM [Concomitant]
  5. DIGITEK [Concomitant]
  6. NORVASC [Concomitant]
  7. LISINOPRIL [Concomitant]
  8. LIPITOR [Concomitant]
  9. NEURONTIN [Concomitant]
  10. METOPROLOL [Concomitant]
  11. VITAMIN B12 FOR INJECTION [Concomitant]
  12. CITRACAL [Concomitant]

REACTIONS (9)
  - ABDOMINAL TENDERNESS [None]
  - ASTHENIA [None]
  - DECREASED APPETITE [None]
  - DYSGEUSIA [None]
  - DYSPNOEA [None]
  - NAUSEA [None]
  - PAINFUL RESPIRATION [None]
  - PALLOR [None]
  - RETCHING [None]
